FAERS Safety Report 17392400 (Version 2)
Quarter: 2020Q1

REPORT INFORMATION
  Report Type: Spontaneous
  Country: US (occurrence: US)
  Receive Date: 20200207
  Receipt Date: 20200309
  Transmission Date: 20200409
  Serious: Yes (Other)
  Sender: FDA-Public Use
  Company Number: US-TRIS PHARMA, INC.-20US008784

PATIENT

DRUGS (1)
  1. METHYLPHENIDATE HYDROCHLORIDE. [Suspect]
     Active Substance: METHYLPHENIDATE HYDROCHLORIDE
     Indication: ATTENTION DEFICIT/HYPERACTIVITY DISORDER
     Dosage: 20 MILLIGRAM, BID (ONCE AT 7 AM AND AGAIN AT 11 AM)
     Route: 048
     Dates: start: 20190101

REACTIONS (3)
  - Therapeutic product effect incomplete [Unknown]
  - Underweight [Unknown]
  - Decreased appetite [Recovering/Resolving]
